FAERS Safety Report 12940811 (Version 2)
Quarter: 2016Q4

REPORT INFORMATION
  Report Type: Report from Study
  Country: FR (occurrence: FR)
  Receive Date: 20161115
  Receipt Date: 20161216
  Transmission Date: 20170207
  Serious: Yes (Hospitalization)
  Sender: FDA-Public Use
  Company Number: FR-ROCHE-1853127

PATIENT
  Age: 62 Year
  Sex: Male

DRUGS (12)
  1. CACIT D3 [Concomitant]
     Active Substance: CALCIUM\CHOLECALCIFEROL
  2. COAPROVEL [Concomitant]
     Active Substance: HYDROCHLOROTHIAZIDE\IRBESARTAN
  3. PARACETAMOL [Suspect]
     Active Substance: ACETAMINOPHEN
     Indication: CRYOGLOBULINAEMIA
     Route: 042
     Dates: start: 20160405, end: 20160428
  4. METHYLPREDNISOLONE. [Suspect]
     Active Substance: METHYLPREDNISOLONE
     Indication: CRYOGLOBULINAEMIA
     Route: 042
     Dates: start: 20160405, end: 20160428
  5. BELIMUMAB [Concomitant]
     Active Substance: BELIMUMAB
     Route: 065
     Dates: start: 20160711
  6. PLAVIX [Concomitant]
     Active Substance: CLOPIDOGREL BISULFATE
  7. LERCAN [Concomitant]
     Active Substance: LERCANIDIPINE
  8. IRBESARTAN. [Concomitant]
     Active Substance: IRBESARTAN
  9. PREDNISONE. [Suspect]
     Active Substance: PREDNISONE
     Indication: CRYOGLOBULINAEMIA
     Route: 048
     Dates: start: 20160405, end: 20160428
  10. RITUXIMAB [Suspect]
     Active Substance: RITUXIMAB
     Indication: CRYOGLOBULINAEMIA
     Route: 042
     Dates: start: 20160406, end: 20160428
  11. DEXCHLORPHENIRAMINE [Suspect]
     Active Substance: DEXCHLORPHENIRAMINE
     Indication: CRYOGLOBULINAEMIA
     Route: 042
     Dates: start: 20160405, end: 20160428
  12. ACTONEL [Concomitant]
     Active Substance: RISEDRONATE SODIUM

REACTIONS (2)
  - Dermo-hypodermitis [Recovered/Resolved]
  - Diabetic foot [Recovered/Resolved]

NARRATIVE: CASE EVENT DATE: 20160909
